FAERS Safety Report 7971042-4 (Version None)
Quarter: 2011Q4

REPORT INFORMATION
  Report Type: 
  Country: None (occurrence: None)
  Receive Date: 20111212
  Receipt Date: 20111212
  Transmission Date: 20120403
  Serious: No
  Sender: FDA-Public Use
  Company Number: None

PATIENT
  Sex: Female
  Weight: 68.038 kg

DRUGS (2)
  1. TOPIRAMATE [Suspect]
     Indication: MIGRAINE
     Dosage: 1 TABLET AT NIGHT AT BEDTIME
     Route: 048
     Dates: start: 20111107, end: 20111113
  2. TOPIRAMATE [Concomitant]
     Dosage: 1 TABLET
     Route: 048
     Dates: start: 20111114, end: 20111117

REACTIONS (1)
  - BLINDNESS [None]
